FAERS Safety Report 8616833-1 (Version None)
Quarter: 2012Q3

REPORT INFORMATION
  Report Type: 
  Country: None (occurrence: None)
  Receive Date: 20120823
  Receipt Date: 20120808
  Transmission Date: 20120928
  Serious: No
  Sender: FDA-Public Use
  Company Number: US-009507513-1208USA004684

PATIENT

DRUGS (3)
  1. PEG-INTRON [Suspect]
     Dosage: 120 MICROGRAM, QW
     Route: 058
     Dates: start: 20120504, end: 20120807
  2. VICTRELIS [Suspect]
     Indication: HEPATITIS C
     Dosage: 800 MG, TID
     Route: 048
     Dates: start: 20120611, end: 20120807
  3. RIBASPHERE [Suspect]
     Dosage: UNK

REACTIONS (4)
  - THYROID DISORDER [None]
  - TRANSFUSION [None]
  - RENAL DISORDER [None]
  - HORMONE LEVEL ABNORMAL [None]
